FAERS Safety Report 19735225 (Version 1)
Quarter: 2021Q3

REPORT INFORMATION
  Report Type: Spontaneous
  Country: US (occurrence: US)
  Receive Date: 20210823
  Receipt Date: 20210823
  Transmission Date: 20211014
  Serious: No
  Sender: FDA-Public Use
  Company Number: US-ASTRAZENECA-2021A653072

PATIENT
  Age: 82 Year
  Sex: Female
  Weight: 42.2 kg

DRUGS (1)
  1. SYMBICORT [Suspect]
     Active Substance: BUDESONIDE\FORMOTEROL FUMARATE DIHYDRATE
     Indication: ASTHMA
     Dosage: 80MCG/4.5MCG 2 PUFFS TWICE DAILY
     Route: 055
     Dates: start: 20210629

REACTIONS (13)
  - Glossitis [Not Recovered/Not Resolved]
  - Ageusia [Not Recovered/Not Resolved]
  - Epistaxis [Not Recovered/Not Resolved]
  - Wheezing [Not Recovered/Not Resolved]
  - Chest pain [Not Recovered/Not Resolved]
  - Decreased appetite [Not Recovered/Not Resolved]
  - Nasal congestion [Not Recovered/Not Resolved]
  - Lacrimation increased [Not Recovered/Not Resolved]
  - Throat irritation [Not Recovered/Not Resolved]
  - Palpitations [Not Recovered/Not Resolved]
  - Cheilitis [Not Recovered/Not Resolved]
  - Stomatitis [Not Recovered/Not Resolved]
  - Vision blurred [Not Recovered/Not Resolved]

NARRATIVE: CASE EVENT DATE: 2021
